FAERS Safety Report 5047606-7 (Version None)
Quarter: 2006Q2

REPORT INFORMATION
  Report Type: 
  Country: None (occurrence: None)
  Receive Date: 20060601
  Receipt Date: 20060327
  Transmission Date: 20061013
  Serious: No
  Sender: FDA-Public Use
  Company Number: 2006PV010996

PATIENT
  Age: 62 Year
  Sex: Male
  Weight: 101.1521 kg

DRUGS (4)
  1. BYETTA [Suspect]
     Indication: DIABETES MELLITUS NON-INSULIN-DEPENDENT
     Dosage: SEE IMAGE
     Route: 058
     Dates: start: 20060112, end: 20060211
  2. BYETTA [Suspect]
     Indication: DIABETES MELLITUS NON-INSULIN-DEPENDENT
     Dosage: SEE IMAGE
     Route: 058
     Dates: start: 20060212
  3. AVANDIA [Concomitant]
  4. GLUCOVANCE [Concomitant]

REACTIONS (1)
  - BLOOD GLUCOSE INCREASED [None]
